FAERS Safety Report 5364808-0 (Version None)
Quarter: 2007Q2

REPORT INFORMATION
  Report Type: 
  Country: None (occurrence: None)
  Receive Date: 20070621
  Receipt Date: 20070611
  Transmission Date: 20071010
  Serious: No
  Sender: FDA-Public Use
  Company Number: PHBS2007JP08588

PATIENT
  Age: 40 Year
  Sex: Male

DRUGS (1)
  1. SANDIMMUNE [Suspect]
     Indication: APLASTIC ANAEMIA
     Route: 065

REACTIONS (1)
  - PAROXYSMAL NOCTURNAL HAEMOGLOBINURIA [None]
